FAERS Safety Report 20148767 (Version 2)
Quarter: 2021Q4

REPORT INFORMATION
  Report Type: Spontaneous
  Country: US (occurrence: US)
  Receive Date: 20211204
  Receipt Date: 20211217
  Transmission Date: 20220303
  Serious: No
  Sender: FDA-Public Use
  Company Number: US-UNITED THERAPEUTICS-UNT-2021-024403

PATIENT
  Sex: Female

DRUGS (3)
  1. REMODULIN [Suspect]
     Active Substance: TREPROSTINIL
     Indication: Pulmonary arterial hypertension
     Dosage: UNK, CONTINUING
     Route: 041
     Dates: start: 20211117
  2. REMODULIN [Suspect]
     Active Substance: TREPROSTINIL
     Dosage: 0.0115 ?G/KG, CONTINUING
     Route: 041
     Dates: start: 2021
  3. REMODULIN [Suspect]
     Active Substance: TREPROSTINIL
     Dosage: 0.012 ?G/KG, CONTINUING
     Route: 041
     Dates: start: 2021

REACTIONS (5)
  - Pain in extremity [Unknown]
  - Muscle spasms [Unknown]
  - Headache [Unknown]
  - Constipation [Unknown]
  - Nausea [Unknown]

NARRATIVE: CASE EVENT DATE: 20210101
